FAERS Safety Report 7792688-2 (Version None)
Quarter: 2011Q4

REPORT INFORMATION
  Report Type: 
  Country: None (occurrence: None)
  Receive Date: 20111003
  Receipt Date: 20110926
  Transmission Date: 20120403
  Serious: Yes (Hospitalization)
  Sender: FDA-Public Use
  Company Number: US-MERCK-1107USA00789

PATIENT
  Age: 59 Year
  Sex: Female
  Weight: 73 kg

DRUGS (11)
  1. FOSAMAX PLUS D [Suspect]
     Indication: OSTEOPOROSIS
     Route: 048
     Dates: start: 20020101, end: 20020101
  2. FOSAMAX PLUS D [Suspect]
     Indication: OSTEOPENIA
     Route: 048
     Dates: start: 20020101, end: 20020101
  3. FOSAMAX [Suspect]
     Route: 048
     Dates: start: 20060901, end: 20081001
  4. ALENDRONATE SODIUM [Concomitant]
     Indication: OSTEOPOROSIS
     Route: 048
     Dates: start: 20081001, end: 20100128
  5. CENTRUM [Concomitant]
     Route: 065
  6. FOSAMAX [Suspect]
     Route: 048
     Dates: start: 20060901, end: 20081001
  7. FOSAMAX PLUS D [Suspect]
     Route: 048
     Dates: start: 20060801
  8. FOSAMAX PLUS D [Suspect]
     Route: 048
     Dates: start: 20060801
  9. FOSAMAX [Suspect]
     Indication: OSTEOPOROSIS
     Route: 048
     Dates: start: 20010101, end: 20060801
  10. FOSAMAX [Suspect]
     Indication: OSTEOPENIA
     Route: 048
     Dates: start: 20010101, end: 20060801
  11. ALENDRONATE SODIUM [Concomitant]
     Indication: OSTEOPENIA
     Route: 048
     Dates: start: 20081001, end: 20100128

REACTIONS (20)
  - ESSENTIAL HYPERTENSION [None]
  - LOW DENSITY LIPOPROTEIN INCREASED [None]
  - URINARY TRACT INFECTION [None]
  - MUSCULOSKELETAL PAIN [None]
  - CONTUSION [None]
  - HYPERLIPIDAEMIA [None]
  - OSTEOARTHRITIS [None]
  - ATROPHIC VULVOVAGINITIS [None]
  - FEMUR FRACTURE [None]
  - URETHRAL CARUNCLE [None]
  - SCIATICA [None]
  - INTERVERTEBRAL DISC PROTRUSION [None]
  - FOOT DEFORMITY [None]
  - FALL [None]
  - ANAEMIA [None]
  - RHEUMATOID FACTOR POSITIVE [None]
  - INTERVERTEBRAL DISC DEGENERATION [None]
  - FOOT FRACTURE [None]
  - LOW TURNOVER OSTEOPATHY [None]
  - MYALGIA [None]
